FAERS Safety Report 21921553 (Version 3)
Quarter: 2023Q1

REPORT INFORMATION
  Report Type: Report from Study
  Country: US (occurrence: US)
  Receive Date: 20230127
  Receipt Date: 20230210
  Transmission Date: 20230417
  Serious: Yes (Hospitalization, Other)
  Sender: FDA-Public Use
  Company Number: US-JAZZ-2023-US-001505

PATIENT
  Sex: Male

DRUGS (6)
  1. XYREM [Suspect]
     Active Substance: SODIUM OXYBATE
     Indication: Narcolepsy
     Dosage: UNK
  2. XYREM [Suspect]
     Active Substance: SODIUM OXYBATE
     Indication: Cataplexy
  3. XYREM [Suspect]
     Active Substance: SODIUM OXYBATE
     Indication: Somnolence
  4. METHYLPHENIDATE HYDROCHLORIDE [Concomitant]
     Active Substance: METHYLPHENIDATE HYDROCHLORIDE
     Indication: Product used for unknown indication
     Dosage: UNK
     Dates: start: 20230130
  5. LOSARTAN POTASSIUM [Concomitant]
     Active Substance: LOSARTAN POTASSIUM
     Indication: Product used for unknown indication
     Dosage: UNK
     Dates: start: 20230126
  6. BENZOSIDE [Concomitant]
     Indication: Product used for unknown indication
     Dosage: AT THE HOSPITAL
     Dates: start: 20230203

REACTIONS (12)
  - Blood pressure increased [Unknown]
  - Erectile dysfunction [Unknown]
  - Ocular hyperaemia [Unknown]
  - Dry eye [Unknown]
  - Vomiting [Unknown]
  - Nausea [Unknown]
  - Nasal congestion [Unknown]
  - Headache [Unknown]
  - Heart rate increased [Unknown]
  - Weight decreased [Unknown]
  - Pre-existing condition improved [Unknown]
  - Product dose omission issue [Unknown]
